FAERS Safety Report 9306531 (Version 1)
Quarter: 2013Q2

REPORT INFORMATION
  Report Type: Spontaneous
  Country: AU (occurrence: AU)
  Receive Date: 20130523
  Receipt Date: 20130523
  Transmission Date: 20140414
  Serious: Yes (Hospitalization, Other)
  Sender: FDA-Public Use
  Company Number: AU-PFIZER INC-2013155527

PATIENT
  Age: 4 Year
  Sex: Female

DRUGS (1)
  1. VENLAFAXINE HCL [Suspect]
     Dosage: UNK
     Route: 048

REACTIONS (8)
  - Accidental exposure to product [Recovered/Resolved]
  - Dystonia [Recovered/Resolved with Sequelae]
  - Hypertension [Recovered/Resolved]
  - Locked-in syndrome [Recovered/Resolved]
  - Extrapyramidal disorder [Recovered/Resolved]
  - Tachycardia [Recovered/Resolved]
  - Urinary incontinence [Recovered/Resolved]
  - Mydriasis [Recovered/Resolved]
